FAERS Safety Report 24539775 (Version 1)
Quarter: 2024Q4

REPORT INFORMATION
  Report Type: Report from Study
  Country: KR (occurrence: KR)
  Receive Date: 20241023
  Receipt Date: 20241023
  Transmission Date: 20250114
  Serious: Yes (Other)
  Sender: JOHNSON AND JOHNSON
  Company Number: KR-JNJFOC-20240237930

PATIENT
  Age: 74 Year
  Sex: Male
  Weight: 69.5 kg

DRUGS (4)
  1. LAZERTINIB [Suspect]
     Active Substance: LAZERTINIB
     Indication: Non-small cell lung cancer
     Route: 065
     Dates: start: 20231114, end: 20231120
  2. LAZERTINIB [Suspect]
     Active Substance: LAZERTINIB
     Route: 048
     Dates: start: 20231201
  3. LAZERTINIB [Suspect]
     Active Substance: LAZERTINIB
     Route: 048
     Dates: start: 20240219
  4. LAZERTINIB [Suspect]
     Active Substance: LAZERTINIB
     Route: 048
     Dates: start: 20240401

REACTIONS (6)
  - Ileus [Recovered/Resolved]
  - Asthenia [Recovered/Resolved]
  - Diarrhoea [Recovered/Resolved]
  - Decreased appetite [Recovering/Resolving]
  - Paraesthesia [Not Recovered/Not Resolved]
  - Off label use [Unknown]

NARRATIVE: CASE EVENT DATE: 20231115
